FAERS Safety Report 9267111 (Version 1)
Quarter: 2013Q2

REPORT INFORMATION
  Report Type: Spontaneous
  Country: US (occurrence: US)
  Receive Date: 20130502
  Receipt Date: 20130502
  Transmission Date: 20140414
  Serious: Yes (Hospitalization)
  Sender: FDA-Public Use
  Company Number: US-GILEAD-2013-0072834

PATIENT
  Sex: Female

DRUGS (3)
  1. LETAIRIS [Suspect]
     Indication: PULMONARY HYPERTENSION
     Dates: start: 20100827
  2. LETAIRIS [Suspect]
     Indication: PERIPARTUM CARDIOMYOPATHY
  3. REVATIO [Concomitant]

REACTIONS (2)
  - Pneumonia [Unknown]
  - Acute respiratory distress syndrome [Unknown]
